FAERS Safety Report 5987738-X (Version None)
Quarter: 2008Q4

REPORT INFORMATION
  Report Type: 
  Country: None (occurrence: None)
  Receive Date: 20081209
  Receipt Date: 20081124
  Transmission Date: 20090506
  Serious: Yes (Death)
  Sender: FDA-Public Use
  Company Number: CA-GENENTECH-272430

PATIENT
  Sex: Male

DRUGS (5)
  1. BEVACIZUMAB [Suspect]
     Indication: NON-SMALL CELL LUNG CANCER
     Dosage: 1045 MG, Q3W
     Route: 042
     Dates: start: 20080402
  2. GEMCITABINE HCL [Concomitant]
     Indication: NON-SMALL CELL LUNG CANCER
     Dosage: 1840 MG, Q3W
     Route: 042
     Dates: start: 20080402
  3. CARBOPLATIN [Concomitant]
     Indication: NON-SMALL CELL LUNG CANCER
     Dosage: UNK
     Route: 042
     Dates: start: 20080402
  4. COSOPT [Concomitant]
     Indication: DRUG USE FOR UNKNOWN INDICATION
  5. CODEINE SUL TAB [Concomitant]
     Indication: DRUG USE FOR UNKNOWN INDICATION
     Dosage: UNK
     Dates: start: 20081105

REACTIONS (1)
  - PERICARDIAL EFFUSION [None]
